FAERS Safety Report 5378805-2 (Version None)
Quarter: 2007Q3

REPORT INFORMATION
  Report Type: 
  Country: None (occurrence: None)
  Receive Date: 20070705
  Receipt Date: 20070626
  Transmission Date: 20080115
  Serious: Yes (Other)
  Sender: FDA-Public Use
  Company Number: US-AMGEN-US230658

PATIENT
  Sex: Female

DRUGS (5)
  1. NEULASTA [Suspect]
     Indication: CHEMOTHERAPY
     Route: 065
     Dates: start: 20070615
  2. TAXOTERE [Concomitant]
     Route: 065
     Dates: start: 20070613
  3. ADRIAMYCIN PFS [Concomitant]
     Route: 065
     Dates: start: 20070613
  4. INSULIN [Concomitant]
     Route: 065
  5. ZOCOR [Concomitant]
     Route: 048

REACTIONS (6)
  - CATHETER SITE HAEMATOMA [None]
  - CATHETER SITE INFECTION [None]
  - CONVULSION [None]
  - DRUG INEFFECTIVE [None]
  - PNEUMONIA ASPIRATION [None]
  - PYREXIA [None]
